FAERS Safety Report 6722460-3 (Version None)
Quarter: 2010Q2

REPORT INFORMATION
  Report Type: 
  Country: None (occurrence: None)
  Receive Date: 20100512
  Receipt Date: 20100507
  Transmission Date: 20101027
  Serious: Yes (Other)
  Sender: FDA-Public Use
  Company Number: CHPA2010US08125

PATIENT
  Sex: Female

DRUGS (4)
  1. PREVACID 24 HR [Suspect]
     Indication: ABDOMINAL DISCOMFORT
     Dosage: 15 MG, QD
     Route: 048
     Dates: start: 20100401, end: 20100505
  2. PLAVIX [Concomitant]
     Route: 048
  3. ASPIRIN [Concomitant]
  4. LIPITOR [Concomitant]

REACTIONS (3)
  - HAEMORRHAGE [None]
  - OFF LABEL USE [None]
  - WRONG TECHNIQUE IN DRUG USAGE PROCESS [None]
